FAERS Safety Report 23972028 (Version 2)
Quarter: 2024Q2

REPORT INFORMATION
  Report Type: Spontaneous
  Country: DE (occurrence: None)
  Receive Date: 20240613
  Receipt Date: 20240614
  Transmission Date: 20240715
  Serious: Yes (Death, Other)
  Sender: FDA-Public Use
  Company Number: 2024A134350

PATIENT
  Age: 46 Year
  Sex: Female

DRUGS (24)
  1. TAMOXIFEN [Suspect]
     Active Substance: TAMOXIFEN
     Indication: Breast cancer metastatic
     Dosage: UNK
  2. TRASTUZUMAB DERUXTECAN [Suspect]
     Active Substance: TRASTUZUMAB DERUXTECAN
     Indication: Breast cancer metastatic
     Dosage: UNK
  3. TRASTUZUMAB DERUXTECAN [Suspect]
     Active Substance: TRASTUZUMAB DERUXTECAN
     Indication: HER2 negative breast cancer
     Dosage: UNK
  4. OLAPARIB [Suspect]
     Active Substance: OLAPARIB
     Indication: Breast cancer metastatic
     Dosage: UNK
  5. BEVACIZUMAB [Suspect]
     Active Substance: BEVACIZUMAB
     Indication: Breast cancer metastatic
     Dosage: UNK
  6. CAPECITABINE [Suspect]
     Active Substance: CAPECITABINE
     Indication: Breast cancer metastatic
     Dosage: UNK
  7. PERTUZUMAB [Suspect]
     Active Substance: PERTUZUMAB
     Indication: Breast cancer metastatic
     Dosage: UNK
  8. CARBOPLATIN [Suspect]
     Active Substance: CARBOPLATIN
     Indication: Breast cancer metastatic
     Dosage: UNK
  9. EPIRUBICIN [Suspect]
     Active Substance: EPIRUBICIN
     Indication: Breast cancer metastatic
     Dosage: UNK
  10. ERIBULIN [Suspect]
     Active Substance: ERIBULIN
     Indication: Breast cancer metastatic
     Dosage: UNK
  11. CYCLOPHOSPHAMIDE [Suspect]
     Active Substance: CYCLOPHOSPHAMIDE
     Indication: Breast cancer metastatic
     Dosage: UNK
  12. LETROZOLE [Suspect]
     Active Substance: LETROZOLE
     Indication: Breast cancer metastatic
     Dosage: UNK
  13. NERATINIB [Suspect]
     Active Substance: NERATINIB
     Indication: Breast cancer metastatic
     Dosage: UNK
  14. ADO-TRASTUZUMAB EMTANSINE [Suspect]
     Active Substance: ADO-TRASTUZUMAB EMTANSINE
     Indication: Breast cancer metastatic
     Dosage: UNK
  15. IFOSFAMIDE [Suspect]
     Active Substance: IFOSFAMIDE
     Indication: Breast cancer metastatic
     Dosage: UNK
  16. MITOMYCIN [Suspect]
     Active Substance: MITOMYCIN
     Indication: Breast cancer metastatic
     Dosage: UNK
  17. EVEROLIMUS [Suspect]
     Active Substance: EVEROLIMUS
     Indication: Breast cancer metastatic
     Dosage: UNK
  18. CISPLATIN [Suspect]
     Active Substance: CISPLATIN
     Indication: Breast cancer metastatic
     Dosage: UNK
  19. PALBOCICLIB [Suspect]
     Active Substance: PALBOCICLIB
     Indication: Breast cancer metastatic
     Dosage: UNK
  20. PACLITAXEL [Suspect]
     Active Substance: PACLITAXEL
     Indication: Breast cancer metastatic
     Dosage: UNK
  21. RITUXIMAB [Suspect]
     Active Substance: RITUXIMAB
     Indication: Breast cancer metastatic
     Dosage: UNK
  22. LAPATINIB [Suspect]
     Active Substance: LAPATINIB
     Indication: Breast cancer metastatic
     Dosage: UNK
  23. TRASTUZUMAB [Suspect]
     Active Substance: TRASTUZUMAB
     Indication: Breast cancer metastatic
  24. DOCETAXEL [Suspect]
     Active Substance: DOCETAXEL\DOCETAXEL ANHYDROUS
     Indication: Breast cancer metastatic
     Dosage: UNK

REACTIONS (5)
  - Peritonitis [Fatal]
  - Device related sepsis [Fatal]
  - Disease progression [Unknown]
  - Drug ineffective [Unknown]
  - Off label use [Unknown]
